FAERS Safety Report 7764289-3 (Version None)
Quarter: 2011Q3

REPORT INFORMATION
  Report Type: 
  Country: None (occurrence: None)
  Receive Date: 20110921
  Receipt Date: 20110916
  Transmission Date: 20111222
  Serious: Yes (Hospitalization)
  Sender: FDA-Public Use
  Company Number: JP-B.I. PHARMACEUTICALS,INC./RIDGEFIELD-2011-BP-21717NB

PATIENT
  Sex: Male
  Weight: 54 kg

DRUGS (23)
  1. MALFA [Concomitant]
     Dosage: 40 ML
     Route: 048
  2. HARNAL D [Concomitant]
     Dosage: 0.2 MG
     Route: 048
     Dates: end: 20110906
  3. SINGULAIR [Concomitant]
     Dosage: 10 MG
     Route: 048
  4. THEO-DUR [Concomitant]
     Dosage: 400 MG
     Route: 048
  5. LOSARTAN POTASSIUM AND HYDROCHLOROTHIAZIDE [Concomitant]
     Route: 048
  6. SPIRIVA [Suspect]
     Dosage: 18 MCG
     Route: 055
     Dates: end: 20110907
  7. PREDNISOLONE [Concomitant]
     Dosage: 5 MG
     Route: 048
  8. FOLIC ACID [Concomitant]
     Dosage: 5 MG
     Route: 048
     Dates: start: 20110907, end: 20110907
  9. DAI-KENCHU-TO [Concomitant]
     Dosage: 7.5 G
     Route: 048
  10. VOLTAREN [Concomitant]
     Route: 065
  11. RHEUMATREX [Concomitant]
     Dosage: 4 MG
     Route: 048
  12. HALCION [Concomitant]
     Dosage: 0.25 MG
     Route: 048
     Dates: start: 20110825
  13. MUCODYNE [Concomitant]
     Dosage: 1500 MG
     Route: 048
  14. LOXONIN [Concomitant]
     Dosage: 180 MG
     Route: 048
  15. MARZULENE-S [Concomitant]
     Dosage: 1.5 G
     Route: 048
  16. ANTOBRON L [Concomitant]
     Dosage: 45 MG
     Route: 048
  17. HOKUNALIN TAPE [Concomitant]
     Dosage: 2 MG
     Route: 065
  18. TOWARAT-CR [Concomitant]
     Dosage: 40 MG
     Route: 048
  19. EPLERENONE [Concomitant]
     Dosage: 50 MG
     Route: 048
  20. OMEPRAZOLE [Concomitant]
     Dosage: 20 MG
     Route: 048
     Dates: end: 20110906
  21. EBRANTIL [Concomitant]
     Dosage: 30 MG
     Route: 048
     Dates: end: 20110906
  22. RESTAMIN CORTISONE [Concomitant]
     Dosage: 10 G
     Route: 065
     Dates: start: 20110907, end: 20110907
  23. REMICADE [Concomitant]
     Route: 065

REACTIONS (2)
  - SPINAL COMPRESSION FRACTURE [None]
  - URINARY RETENTION [None]
